FAERS Safety Report 11316582 (Version 4)
Quarter: 2015Q4

REPORT INFORMATION
  Report Type: Report from Study
  Country: US (occurrence: US)
  Receive Date: 20150728
  Receipt Date: 20151217
  Transmission Date: 20160304
  Serious: Yes (Other)
  Sender: FDA-Public Use
  Company Number: PHEH2015US002784

PATIENT
  Age: 32 Year
  Sex: Female
  Weight: 60.32 kg

DRUGS (1)
  1. GILENYA [Suspect]
     Active Substance: FINGOLIMOD HYDROCHLORIDE
     Indication: MULTIPLE SCLEROSIS
     Dosage: 0.5 MG, QD
     Route: 048
     Dates: start: 20150205

REACTIONS (8)
  - Exostosis [Unknown]
  - Sensory loss [Not Recovered/Not Resolved]
  - Fatigue [Recovered/Resolved]
  - Hypoaesthesia [Recovering/Resolving]
  - Abasia [Not Recovered/Not Resolved]
  - Fatigue [Recovered/Resolved]
  - Paraesthesia [Recovering/Resolving]
  - Multiple sclerosis relapse [Recovering/Resolving]

NARRATIVE: CASE EVENT DATE: 20150205
